FAERS Safety Report 24111425 (Version 1)
Quarter: 2024Q3

REPORT INFORMATION
  Report Type: Spontaneous
  Country: CN (occurrence: CN)
  Receive Date: 20240718
  Receipt Date: 20240718
  Transmission Date: 20241017
  Serious: Yes (Death)
  Sender: EISAI
  Company Number: CN-Eisai-EC-2024-170342

PATIENT
  Age: 52 Year
  Sex: Male

DRUGS (2)
  1. LENVATINIB [Suspect]
     Active Substance: LENVATINIB
     Indication: Hepatocellular carcinoma
     Route: 048
     Dates: start: 2022
  2. SINTILIMAB [Suspect]
     Active Substance: SINTILIMAB
     Indication: Hepatocellular carcinoma
     Dosage: FREQUENCY UNKNOWN
     Route: 048
     Dates: start: 2022

REACTIONS (2)
  - Hepatic infarction [Fatal]
  - Hepatic failure [Fatal]

NARRATIVE: CASE EVENT DATE: 20230101
